FAERS Safety Report 6509466-4 (Version None)
Quarter: 2009Q4

REPORT INFORMATION
  Report Type: 
  Country: None (occurrence: None)
  Receive Date: 20091217
  Receipt Date: 20090227
  Transmission Date: 20100525
  Serious: Yes (Hospitalization)
  Sender: FDA-Public Use
  Company Number: 014295

PATIENT
  Age: 75 Year
  Sex: Male
  Weight: 70 kg

DRUGS (12)
  1. PRIALT [Suspect]
     Indication: NEURALGIA
     Dosage: SEE IMAGE
     Route: 037
     Dates: start: 20090212, end: 20090212
  2. PRIALT [Suspect]
     Indication: NEURALGIA
     Dosage: SEE IMAGE
     Route: 037
     Dates: start: 20090213, end: 20090213
  3. PRIALT [Suspect]
     Indication: NEURALGIA
     Dosage: SEE IMAGE
     Route: 037
     Dates: start: 20090214, end: 20090214
  4. PRIALT [Suspect]
     Indication: NEURALGIA
     Dosage: SEE IMAGE
     Route: 037
     Dates: start: 20090219, end: 20090219
  5. LIORESAL [Concomitant]
  6. TRADOLAN (TRAMADOL HYDROCHLORIDE) [Concomitant]
  7. TRAZODONE HYDROCHLORIDE [Concomitant]
  8. LYRICA [Concomitant]
  9. ESCITALOPRAM [Concomitant]
  10. NORVASC [Concomitant]
  11. ATACAND [Concomitant]
  12. BACLOFEN [Concomitant]

REACTIONS (5)
  - DELIRIUM [None]
  - DEPRESSION [None]
  - OXYGEN SATURATION DECREASED [None]
  - PSYCHOTIC BEHAVIOUR [None]
  - SEDATION [None]
